FAERS Safety Report 4824273-6 (Version None)
Quarter: 2005Q4

REPORT INFORMATION
  Report Type: 
  Country: None (occurrence: None)
  Receive Date: 20051109
  Receipt Date: 20041220
  Transmission Date: 20060501
  Serious: Yes (Life-Threatening, Hospitalization, Disabling)
  Sender: FDA-Public Use
  Company Number: US-MERCK-0412USA02528

PATIENT
  Age: 72 Year
  Sex: Female
  Weight: 90 kg

DRUGS (15)
  1. VIOXX [Suspect]
     Indication: ARTHRITIS
     Route: 048
     Dates: start: 19990101, end: 20040930
  2. ASPIRIN [Concomitant]
     Route: 048
  3. CALCIUM (UNSPECIFIED) [Concomitant]
     Route: 048
  4. COREG [Concomitant]
     Route: 048
  5. PREMARIN [Concomitant]
     Route: 048
  6. LASIX [Concomitant]
     Route: 048
  7. APRESOLINE [Concomitant]
     Route: 048
  8. PREVACID [Concomitant]
     Route: 048
  9. VITAMINS (UNSPECIFIED) [Concomitant]
     Route: 048
  10. K-DUR 10 [Concomitant]
     Route: 048
  11. VITAMIN E [Concomitant]
     Route: 048
  12. NITROGLYCERIN [Suspect]
     Route: 065
  13. ALTACE [Concomitant]
     Route: 048
  14. TIAZAC [Concomitant]
     Route: 048
  15. QUININE [Concomitant]
     Route: 048

REACTIONS (32)
  - ABDOMINAL PAIN [None]
  - ANXIETY [None]
  - ATRIOVENTRICULAR BLOCK SECOND DEGREE [None]
  - BACK DISORDER [None]
  - BACK PAIN [None]
  - BLOOD CHOLESTEROL INCREASED [None]
  - BLOOD TRIGLYCERIDES INCREASED [None]
  - BRADYCARDIA [None]
  - CARDIAC FAILURE CONGESTIVE [None]
  - CARDIAC PACEMAKER MALFUNCTION [None]
  - CELLULITIS [None]
  - CHEST PAIN [None]
  - DIVERTICULUM OESOPHAGEAL [None]
  - DIZZINESS [None]
  - DYSPNOEA [None]
  - ESSENTIAL HYPERTENSION [None]
  - GASTRITIS [None]
  - GASTROOESOPHAGEAL REFLUX DISEASE [None]
  - HEADACHE [None]
  - HEART RATE DECREASED [None]
  - HIATUS HERNIA [None]
  - HYPERLIPIDAEMIA [None]
  - INTRACRANIAL ANEURYSM [None]
  - OEDEMA PERIPHERAL [None]
  - PAIN OF SKIN [None]
  - SHOULDER PAIN [None]
  - SICK SINUS SYNDROME [None]
  - SPINAL COLUMN STENOSIS [None]
  - STRESS [None]
  - SYNCOPE VASOVAGAL [None]
  - VISUAL DISTURBANCE [None]
  - VITREOUS DETACHMENT [None]
